FAERS Safety Report 6301435-2 (Version None)
Quarter: 2009Q3

REPORT INFORMATION
  Report Type: 
  Country: None (occurrence: None)
  Receive Date: 20090807
  Receipt Date: 20090804
  Transmission Date: 20100115
  Serious: Yes (Hospitalization)
  Sender: FDA-Public Use
  Company Number: A0800376A

PATIENT
  Age: 51 Year
  Sex: Female

DRUGS (3)
  1. ALLI [Suspect]
     Indication: WEIGHT LOSS DIET
     Route: 048
     Dates: start: 20090701, end: 20090802
  2. EFFEXOR [Concomitant]
     Indication: MIGRAINE
     Route: 048
  3. INDOCIN [Concomitant]
     Route: 048

REACTIONS (3)
  - APPENDICECTOMY [None]
  - APPENDIX DISORDER [None]
  - DYSPEPSIA [None]
